FAERS Safety Report 9002046 (Version 2)
Quarter: 2014Q4

REPORT INFORMATION
  Report Type: Other
  Country: GB (occurrence: GB)
  Receive Date: 20130108
  Receipt Date: 20141022
  Transmission Date: 20150529
  Serious: Yes (Hospitalization)
  Sender: FDA-Public Use
  Company Number: GB-DENTSPLY-2012SCDP003033

PATIENT
  Age: 53 Year
  Sex: Male

DRUGS (2)
  1. SEPTANEST                          /01355701/ [Suspect]
     Active Substance: ARTICAINE HYDROCHLORIDE\EPINEPHRINE BITARTRATE
     Indication: LOCAL ANAESTHESIA
     Dosage: 4.4 ML, UNK
     Route: 004
  2. LIGNOCAINE WITH ADRENALINE [Suspect]
     Active Substance: EPINEPHRINE BITARTRATE\LIDOCAINE HYDROCHLORIDE
     Indication: LOCAL ANAESTHESIA
     Dosage: 4.4 ML, UNK
     Route: 004

REACTIONS (4)
  - Psychotic disorder [Unknown]
  - Hallucination [Unknown]
  - Blood pressure increased [Unknown]
  - Paranoia [Unknown]

NARRATIVE: CASE EVENT DATE: 20121231
